FAERS Safety Report 18524542 (Version 2)
Quarter: 2020Q4

REPORT INFORMATION
  Report Type: Spontaneous
  Country: US (occurrence: US)
  Receive Date: 20201120
  Receipt Date: 20201227
  Transmission Date: 20210114
  Serious: No
  Sender: FDA-Public Use
  Company Number: US-JNJFOC-20201129737

PATIENT

DRUGS (3)
  1. ZYRTEC [Suspect]
     Active Substance: CETIRIZINE HYDROCHLORIDE
     Indication: URTICARIA
  2. ZYRTEC [Suspect]
     Active Substance: CETIRIZINE HYDROCHLORIDE
     Indication: PRURITUS
  3. ZYRTEC [Suspect]
     Active Substance: CETIRIZINE HYDROCHLORIDE
     Indication: MULTIPLE ALLERGIES
     Dosage: LAST ADMIN DATE 18-NOV-2020
     Route: 048

REACTIONS (4)
  - Therapeutic product effect decreased [Unknown]
  - Therapeutic response unexpected [Unknown]
  - Suspected counterfeit product [Unknown]
  - Product use in unapproved indication [Unknown]
